FAERS Safety Report 11871104 (Version 1)
Quarter: 2015Q4

REPORT INFORMATION
  Report Type: Spontaneous
  Country: US (occurrence: None)
  Receive Date: 20151224
  Receipt Date: 20151224
  Transmission Date: 20160305
  Serious: Yes (Hospitalization)
  Sender: FDA-Public Use
  Company Number: None

PATIENT
  Age: 37 Year
  Sex: Male

DRUGS (3)
  1. CLONAZEPAM. [Concomitant]
     Active Substance: CLONAZEPAM
  2. QUETIAPINE [Concomitant]
     Active Substance: QUETIAPINE
  3. ESCITALOPRAM [Suspect]
     Active Substance: ESCITALOPRAM OXALATE
     Indication: DEPRESSION
     Route: 048
     Dates: end: 20150730

REACTIONS (4)
  - Serotonin syndrome [None]
  - Agitation [None]
  - Aggression [None]
  - Psychotic disorder [None]

NARRATIVE: CASE EVENT DATE: 20150730
